FAERS Safety Report 17540770 (Version 8)
Quarter: 2020Q3

REPORT INFORMATION
  Report Type: Report from Study
  Country: BR (occurrence: BR)
  Receive Date: 20200313
  Receipt Date: 20200703
  Transmission Date: 20201102
  Serious: Yes (Death, Life-Threatening, Hospitalization)
  Sender: FDA-Public Use
  Company Number: BR-ROCHE-2566140

PATIENT
  Age: 61 Year
  Sex: Female
  Weight: 63.5 kg

DRUGS (35)
  1. SODIUM BICARBONATE. [Concomitant]
     Active Substance: SODIUM BICARBONATE
     Indication: ONYCHOMYCOSIS
     Route: 065
     Dates: start: 20200109, end: 20200308
  2. PREDNISONE. [Concomitant]
     Active Substance: PREDNISONE
     Indication: VASCULITIS
     Route: 048
     Dates: start: 20200213, end: 20200219
  3. RANITIDINE. [Concomitant]
     Active Substance: RANITIDINE
     Route: 065
     Dates: start: 20200227, end: 20200227
  4. ATEZOLIZUMAB. [Suspect]
     Active Substance: ATEZOLIZUMAB
     Indication: HER2 POSITIVE BREAST CANCER
     Dosage: MOST RECENT DOSE OF ATEZOLIZUMAB PRIOR TO SAE ON 02/JAN/2020
     Route: 041
     Dates: start: 20190926
  5. CYCLOPHOSPHAMIDE. [Suspect]
     Active Substance: CYCLOPHOSPHAMIDE
     Indication: HER2 POSITIVE BREAST CANCER
     Dosage: MOST RECENT DOSE OF CYCLOPHOSPHAMIDE PRIOR TO SAE AT 1050 MG ON 07/NOV/2019
     Route: 042
     Dates: start: 20190926
  6. JANUMET [Concomitant]
     Active Substance: METFORMIN HYDROCHLORIDE\SITAGLIPTIN PHOSPHATE
     Indication: TYPE 2 DIABETES MELLITUS
     Route: 065
     Dates: start: 201909, end: 20200308
  7. OMEPRAZOLE. [Concomitant]
     Active Substance: OMEPRAZOLE
     Indication: GASTRITIS PROPHYLAXIS
     Route: 065
     Dates: start: 20190925, end: 20200309
  8. PREDNISONE. [Concomitant]
     Active Substance: PREDNISONE
     Route: 048
     Dates: start: 20200301
  9. FORXIGA [Concomitant]
     Active Substance: DAPAGLIFLOZIN
     Indication: DIABETES MELLITUS
     Route: 065
     Dates: start: 20200215, end: 20200308
  10. DEXAMETHASONE. [Concomitant]
     Active Substance: DEXAMETHASONE
     Route: 042
     Dates: start: 20200227, end: 20200227
  11. DEXTROSE 5% [Concomitant]
     Active Substance: DEXTROSE
     Indication: PROPHYLAXIS
     Route: 065
     Dates: start: 20200309, end: 20200309
  12. GLUTAMINE [Concomitant]
     Active Substance: GLUTAMINE
     Indication: PROPHYLAXIS
     Route: 065
     Dates: start: 2018, end: 20200308
  13. RANITIDINE. [Concomitant]
     Active Substance: RANITIDINE
     Route: 065
     Dates: start: 20200219, end: 20200219
  14. TRASTUZUMAB. [Suspect]
     Active Substance: TRASTUZUMAB
     Indication: HER2 POSITIVE BREAST CANCER
     Dosage: LOADING DOSE
     Route: 042
     Dates: start: 20191121
  15. IMOSEC [Concomitant]
     Active Substance: LOPERAMIDE
     Indication: DIARRHOEA
     Route: 065
     Dates: start: 20191201, end: 20200308
  16. PROMETHAZINE [Concomitant]
     Active Substance: PROMETHAZINE HYDROCHLORIDE
     Indication: INFUSION RELATED REACTION
     Route: 065
     Dates: start: 20200109, end: 20200308
  17. CEFALEXIN [Concomitant]
     Active Substance: CEPHALEXIN
     Indication: INFECTION PROPHYLAXIS
     Route: 065
     Dates: start: 20200213, end: 20200219
  18. PREDNISONE. [Concomitant]
     Active Substance: PREDNISONE
     Route: 048
     Dates: start: 20200220, end: 20200224
  19. DEXAMETHASONE. [Concomitant]
     Active Substance: DEXAMETHASONE
     Route: 042
     Dates: start: 20200304, end: 20200304
  20. DRAMIN B6 [Concomitant]
     Route: 065
     Dates: start: 20200304, end: 20200304
  21. DIPHENHYDRAMINE. [Concomitant]
     Active Substance: DIPHENHYDRAMINE
     Route: 065
     Dates: start: 20200227, end: 20200227
  22. DIPHENHYDRAMINE. [Concomitant]
     Active Substance: DIPHENHYDRAMINE
     Route: 065
     Dates: start: 20200304, end: 20200304
  23. RANITIDINE. [Concomitant]
     Active Substance: RANITIDINE
     Route: 065
     Dates: start: 20200304, end: 20200304
  24. DOXORUBICIN [Suspect]
     Active Substance: DOXORUBICIN
     Indication: HER2 POSITIVE BREAST CANCER
     Dosage: MOST RECENT DOSE OF DOXORUBICIN PRIOR TO SAE AT 105 MG ON 07/NOV/2019
     Route: 042
     Dates: start: 20190926
  25. PERTUZUMAB. [Suspect]
     Active Substance: PERTUZUMAB
     Dosage: MAINTENANCE DOSE?MOST RECENT DOSE OF PERTUZUMAB PRIOR TO SAE AT 420 MG ON 02/JAN/2020
     Route: 042
  26. PREDNISONE. [Concomitant]
     Active Substance: PREDNISONE
     Route: 048
     Dates: start: 20200225
  27. INSULIN [Concomitant]
     Active Substance: INSULIN NOS
     Indication: DIABETES MELLITUS
     Route: 065
     Dates: start: 20200219, end: 20200309
  28. TRASTUZUMAB. [Suspect]
     Active Substance: TRASTUZUMAB
     Dosage: MAINTENANCE DOSE?MOST RECENT DOSE OF TRASTUZUMAB PRIOR TO SAE AT 450 MG ON 02/JAN/2020
     Route: 042
  29. DEXAMETHASONE. [Concomitant]
     Active Substance: DEXAMETHASONE
     Route: 042
     Dates: start: 20200219, end: 20200219
  30. DIPHENHYDRAMINE. [Concomitant]
     Active Substance: DIPHENHYDRAMINE
     Route: 065
     Dates: start: 20200219, end: 20200219
  31. DRAMIN B6 [Concomitant]
     Route: 065
     Dates: start: 20200227, end: 20200227
  32. ZOFRAN [Concomitant]
     Active Substance: ONDANSETRON HYDROCHLORIDE
     Route: 065
     Dates: start: 20200219, end: 20200219
  33. PACLITAXEL. [Suspect]
     Active Substance: PACLITAXEL
     Indication: HER2 POSITIVE BREAST CANCER
     Dosage: MOST RECENT DOSE OF PACLITAXEL PRIOR TO SAE AT 134.4 MG ON 04/MAR/2020
     Route: 042
     Dates: start: 20191121
  34. PERTUZUMAB. [Suspect]
     Active Substance: PERTUZUMAB
     Indication: HER2 POSITIVE BREAST CANCER
     Dosage: LOADING DOSE
     Route: 042
     Dates: start: 20191121
  35. VYTORIN [Concomitant]
     Active Substance: EZETIMIBE\SIMVASTATIN
     Indication: DYSLIPIDAEMIA
     Route: 065
     Dates: start: 20190810, end: 20200308

REACTIONS (2)
  - Febrile neutropenia [Not Recovered/Not Resolved]
  - Septic shock [Fatal]

NARRATIVE: CASE EVENT DATE: 20200308
